FAERS Safety Report 9314379 (Version 1)
Quarter: 2013Q2

REPORT INFORMATION
  Report Type: Spontaneous
  Country: FR (occurrence: FR)
  Receive Date: 20130529
  Receipt Date: 20130529
  Transmission Date: 20140414
  Serious: Yes (Hospitalization)
  Sender: FDA-Public Use
  Company Number: FR-BAYER-2013-065721

PATIENT
  Age: 68 Year
  Sex: Female

DRUGS (3)
  1. AMOXICILLINE + CLAVULANIC ACID [Suspect]
     Indication: BRONCHITIS
  2. MOXIFLOXACIN ORAL [Suspect]
     Indication: BRONCHITIS
  3. ERYTHROMYCIN [Suspect]
     Indication: BRONCHITIS

REACTIONS (4)
  - Drug reaction with eosinophilia and systemic symptoms [Recovered/Resolved]
  - Fulminant type 1 diabetes mellitus [Not Recovered/Not Resolved]
  - Ketoacidosis [Recovered/Resolved]
  - Rash [None]
